FAERS Safety Report 8143121-2 (Version None)
Quarter: 2012Q1

REPORT INFORMATION
  Report Type: 
  Country: None (occurrence: None)
  Receive Date: 20120217
  Receipt Date: 20120213
  Transmission Date: 20120608
  Serious: No
  Sender: FDA-Public Use
  Company Number: US-PFIZER INC-2012039433

PATIENT
  Sex: Female
  Weight: 55.33 kg

DRUGS (2)
  1. LIPITOR [Suspect]
     Dosage: 10 MG (SPLITTING 20 MG TABLETS INTO HALF), UNK
  2. LIPITOR [Suspect]
     Dosage: UNK

REACTIONS (4)
  - MUSCULOSKELETAL PAIN [None]
  - MUSCLE ENZYME INCREASED [None]
  - MYALGIA [None]
  - WEIGHT DECREASED [None]
